FAERS Safety Report 8094743-9 (Version None)
Quarter: 2012Q1

REPORT INFORMATION
  Report Type: 
  Country: None (occurrence: None)
  Receive Date: 20120129
  Receipt Date: 20111209
  Transmission Date: 20120608
  Serious: No
  Sender: FDA-Public Use
  Company Number: US-ABBOTT-11P-163-0882339-00

PATIENT
  Age: 40 Year
  Sex: Female

DRUGS (7)
  1. TRAZODONE HCL [Concomitant]
     Indication: INSOMNIA
  2. TOPAMAX [Concomitant]
     Indication: MIGRAINE
     Dosage: AT NIGHT
  3. MOTRIN [Concomitant]
     Indication: PAIN
  4. HUMIRA [Suspect]
     Indication: PSORIASIS
     Dosage: LOADING DOSE
     Dates: start: 20111117
  5. KLOR-CON [Concomitant]
     Indication: PRODUCT USED FOR UNKNOWN INDICATION
  6. WELLBUTRIN [Concomitant]
     Indication: ANXIETY
  7. PLAQUENIL [Concomitant]
     Indication: RHEUMATOID ARTHRITIS

REACTIONS (2)
  - INJECTION SITE REACTION [None]
  - INJECTION SITE PAIN [None]
